FAERS Safety Report 10263062 (Version 2)
Quarter: 2014Q2

REPORT INFORMATION
  Report Type: Report from Study
  Country: US (occurrence: US)
  Receive Date: 20140626
  Receipt Date: 20140626
  Transmission Date: 20141212
  Serious: Yes (Other)
  Sender: FDA-Public Use
  Company Number: US-MYLANLABS-2013S1029180

PATIENT
  Age: 22 Year
  Sex: Male

DRUGS (3)
  1. CLOZAPINE TABLETS [Suspect]
     Indication: SCHIZOPHRENIA
     Route: 048
     Dates: start: 201311, end: 20140121
  2. ZYPREXA [Concomitant]
     Dosage: 5 TO 15 MG
     Route: 048
  3. INVEGA /05724801/ [Concomitant]
     Route: 030

REACTIONS (1)
  - Granulocytopenia [Recovered/Resolved]
